FAERS Safety Report 4999634-5 (Version None)
Quarter: 2006Q2

REPORT INFORMATION
  Report Type: 
  Country: None (occurrence: None)
  Receive Date: 20060511
  Receipt Date: 20060503
  Transmission Date: 20061013
  Serious: Yes (Other)
  Sender: FDA-Public Use
  Company Number: GB-MERCK-0605USA01213

PATIENT
  Sex: Female

DRUGS (1)
  1. PRINIVIL [Suspect]
     Route: 048

REACTIONS (2)
  - ANAPHYLACTIC REACTION [None]
  - ANGIONEUROTIC OEDEMA [None]
